FAERS Safety Report 5615115-X (Version None)
Quarter: 2008Q1

REPORT INFORMATION
  Report Type: 
  Country: None (occurrence: None)
  Receive Date: 20080204
  Receipt Date: 20080204
  Transmission Date: 20080703
  Serious: Yes (Hospitalization)
  Sender: FDA-Public Use
  Company Number: None

PATIENT
  Age: 52 Year
  Sex: Female

DRUGS (1)
  1. TAMIFLU [Suspect]
     Indication: INFLUENZA
     Dosage: 75 MG TWICE DAILY ORAL
     Route: 048
     Dates: start: 20080117, end: 20080120

REACTIONS (3)
  - ERYTHEMA MULTIFORME [None]
  - HYPONATRAEMIA [None]
  - PAIN [None]
